FAERS Safety Report 6244108-7 (Version None)
Quarter: 2009Q2

REPORT INFORMATION
  Report Type: 
  Country: None (occurrence: None)
  Receive Date: 20090625
  Receipt Date: 20070504
  Transmission Date: 20091009
  Serious: Yes (Hospitalization, Other)
  Sender: FDA-Public Use
  Company Number: US-ASTRAZENECA-2006UW07894

PATIENT
  Age: 428 Month
  Sex: Male
  Weight: 127.9 kg

DRUGS (13)
  1. SEROQUEL [Suspect]
     Indication: BIPOLAR DISORDER
     Dosage: TOTAL DAILY DOSE 200 MG
     Route: 048
     Dates: start: 20000101
  2. SEROQUEL [Suspect]
     Indication: HALLUCINATION, AUDITORY
     Dosage: TOTAL DAILY DOSE 200 MG
     Route: 048
     Dates: start: 20000101
  3. SEROQUEL [Suspect]
     Dosage: 25 MG MORNING TO 800 MG HS
     Route: 048
     Dates: start: 20010419
  4. SEROQUEL [Suspect]
     Dosage: 25 MG MORNING TO 800 MG HS
     Route: 048
     Dates: start: 20010419
  5. EFFEXOR [Concomitant]
     Indication: PERSONALITY DISORDER
     Dosage: 75 MG TO 150 MG
     Dates: start: 20010301
  6. EFFEXOR [Concomitant]
     Indication: DEPRESSION
     Dosage: 75 MG TO 150 MG
     Dates: start: 20010301
  7. EFFEXOR [Concomitant]
     Dosage: TOTAL DAILY DOSE 150 MG
  8. EFFEXOR [Concomitant]
     Dosage: TOTAL DAILY DOSE 150 MG
  9. EFFEXOR XR [Concomitant]
     Dates: start: 20010301
  10. WELLBUTRIN SR [Concomitant]
     Route: 048
     Dates: start: 20040625
  11. IMIPRAMINE [Concomitant]
     Indication: SLEEP DISORDER
     Dosage: 50 MG TO 250 MG
     Route: 048
     Dates: start: 20050512
  12. ZOCOR [Concomitant]
     Indication: BLOOD CHOLESTEROL
     Dosage: 20 MG OD TO 40 MG 1 DAILY AT SUPPERTIME
     Dates: start: 20050512
  13. LISINOPRIL [Concomitant]
     Indication: HYPERTENSION
     Route: 048
     Dates: start: 20060516

REACTIONS (7)
  - DIABETES MELLITUS [None]
  - DIABETIC KETOACIDOSIS [None]
  - DIABETIC RETINOPATHY [None]
  - KETOACIDOSIS [None]
  - NEUROPATHY PERIPHERAL [None]
  - TYPE 1 DIABETES MELLITUS [None]
  - TYPE 2 DIABETES MELLITUS [None]
